FAERS Safety Report 6693314-6 (Version None)
Quarter: 2010Q2

REPORT INFORMATION
  Report Type: 
  Country: None (occurrence: None)
  Receive Date: 20100421
  Receipt Date: 20100421
  Transmission Date: 20101027
  Serious: Yes (Disabling)
  Sender: FDA-Public Use
  Company Number: None

PATIENT
  Age: 31 Year
  Sex: Female
  Weight: 59.8748 kg

DRUGS (1)
  1. MIRENA [Suspect]
     Indication: CONTRACEPTION
     Dates: start: 20080815, end: 20100312

REACTIONS (3)
  - DEVICE DISLOCATION [None]
  - INJURY ASSOCIATED WITH DEVICE [None]
  - UTERINE PERFORATION [None]
